FAERS Safety Report 5746899-8 (Version None)
Quarter: 2008Q2

REPORT INFORMATION
  Report Type: 
  Country: None (occurrence: None)
  Receive Date: 20080522
  Receipt Date: 20080512
  Transmission Date: 20081010
  Serious: Yes (Other)
  Sender: FDA-Public Use
  Company Number: US-PFIZER INC-2008027137

PATIENT
  Sex: Female
  Weight: 90 kg

DRUGS (5)
  1. CHANTIX [Suspect]
     Indication: SMOKING CESSATION THERAPY
     Route: 048
  2. WELLBUTRIN [Concomitant]
     Route: 048
  3. LYRICA [Concomitant]
     Route: 048
  4. CYMBALTA [Concomitant]
     Route: 048
  5. VALPROIC ACID [Concomitant]
     Route: 048

REACTIONS (7)
  - ANAL HAEMORRHAGE [None]
  - COLON OPERATION [None]
  - CONSTIPATION [None]
  - ILL-DEFINED DISORDER [None]
  - MALAISE [None]
  - NAUSEA [None]
  - ORAL INTAKE REDUCED [None]
